FAERS Safety Report 7138021-0 (Version None)
Quarter: 2010Q4

REPORT INFORMATION
  Report Type: 
  Country: None (occurrence: None)
  Receive Date: 20101118
  Receipt Date: 20101105
  Transmission Date: 20110411
  Serious: Yes (Hospitalization, Other)
  Sender: FDA-Public Use
  Company Number: 011769

PATIENT
  Age: 87 Year
  Sex: Female

DRUGS (1)
  1. PLETAL [Suspect]
     Dosage: 100 MG, BID, ORAL
     Route: 048

REACTIONS (2)
  - CARDIAC FAILURE [None]
  - HEART RATE INCREASED [None]
